FAERS Safety Report 10788345 (Version 1)
Quarter: 2015Q1

REPORT INFORMATION
  Report Type: Spontaneous
  Country: TR (occurrence: None)
  Receive Date: 20150210
  Receipt Date: 20150210
  Transmission Date: 20150721
  Serious: Yes (Life-Threatening)
  Sender: FDA-Public Use
  Company Number: FK201500530

PATIENT
  Age: 16 Year
  Sex: Female

DRUGS (1)
  1. METOPROLOL INJECTION (MANUFACTURER UNKNOWN) (METOPROLOL) [Suspect]
     Active Substance: METOPROLOL
     Indication: PRODUCT USED FOR UNKNOWN INDICATION

REACTIONS (3)
  - Electrocardiogram QT prolonged [None]
  - Dizziness [None]
  - Toxicity to various agents [None]
